FAERS Safety Report 16042892 (Version 3)
Quarter: 2020Q2

REPORT INFORMATION
  Report Type: Spontaneous
  Country: NL (occurrence: NL)
  Receive Date: 20190306
  Receipt Date: 20200606
  Transmission Date: 20200713
  Serious: Yes (Other)
  Sender: FDA-Public Use
  Company Number: NL-BRISTOL-MYERS SQUIBB COMPANY-BMS-2018-124168

PATIENT
  Age: 31 Year
  Sex: Male

DRUGS (1)
  1. DASATINIB. [Suspect]
     Active Substance: DASATINIB
     Indication: CHRONIC MYELOID LEUKAEMIA
     Dosage: UNK
     Route: 065
     Dates: end: 201609

REACTIONS (5)
  - Thrombocytopenia [Unknown]
  - Blast crisis in myelogenous leukaemia [Recovering/Resolving]
  - Drug ineffective [Unknown]
  - Terminal state [Unknown]
  - Pleural effusion [Unknown]

NARRATIVE: CASE EVENT DATE: 201603
